FAERS Safety Report 6472866-5 (Version None)
Quarter: 2009Q4

REPORT INFORMATION
  Report Type: 
  Country: None (occurrence: None)
  Receive Date: 20091201
  Receipt Date: 20091124
  Transmission Date: 20100525
  Serious: Yes (Other)
  Sender: FDA-Public Use
  Company Number: DE-1171319

PATIENT
  Age: 74 Year
  Sex: Female

DRUGS (3)
  1. FLUORESCITE [Suspect]
     Dosage: 4 ML INTRAVENOUS BOLUS
     Route: 040
     Dates: start: 20091021, end: 20091021
  2. AMIODARONE HCL [Concomitant]
  3. MARCUMAR [Concomitant]

REACTIONS (5)
  - BLOOD PRESSURE DECREASED [None]
  - HEART RATE DECREASED [None]
  - HYPERSENSITIVITY [None]
  - SYNCOPE [None]
  - VOMITING [None]
